FAERS Safety Report 7995662-6 (Version None)
Quarter: 2011Q4

REPORT INFORMATION
  Report Type: 
  Country: None (occurrence: None)
  Receive Date: 20111220
  Receipt Date: 20111212
  Transmission Date: 20120403
  Serious: Yes (Hospitalization)
  Sender: FDA-Public Use
  Company Number: US-UCBSA-047548

PATIENT
  Age: 48 Year
  Sex: Male
  Weight: 109.08 kg

DRUGS (6)
  1. ZIAGEN [Concomitant]
     Indication: HIV INFECTION
     Dates: start: 20000101
  2. AMITRIPTYLINE HCL [Concomitant]
     Indication: NEUROPATHY PERIPHERAL
     Dates: start: 20061101
  3. LACOSAMIDE [Suspect]
     Indication: EPILEPSY
     Route: 048
     Dates: start: 20110311
  4. RESCRIPTOR [Concomitant]
     Indication: HIV INFECTION
     Dates: start: 20000101
  5. VIRACEPT [Concomitant]
     Indication: HIV INFECTION
     Dates: start: 20000101
  6. ISONIAZID [Concomitant]
     Indication: ANTIBIOTIC PROPHYLAXIS
     Dates: start: 20110513

REACTIONS (1)
  - CONVULSION [None]
